FAERS Safety Report 4655408-6 (Version None)
Quarter: 2005Q2

REPORT INFORMATION
  Report Type: 
  Country: None (occurrence: None)
  Receive Date: 20050506
  Receipt Date: 20050428
  Transmission Date: 20051028
  Serious: Yes (Hospitalization, Other)
  Sender: FDA-Public Use
  Company Number: FR-ABBOTT-05P-056-0298835-00

PATIENT
  Sex: Male

DRUGS (6)
  1. DEPAKENE [Suspect]
     Indication: LENNOX-GASTAUT SYNDROME
     Route: 048
     Dates: start: 19900101, end: 20050130
  2. DEPAKENE [Suspect]
     Route: 048
     Dates: start: 20050131
  3. FELBAMATE [Interacting]
     Indication: LENNOX-GASTAUT SYNDROME
     Route: 048
     Dates: start: 20011101, end: 20040509
  4. FELBAMATE [Interacting]
     Route: 048
     Dates: start: 20040510
  5. LAMOTRIGINE [Concomitant]
     Indication: LENNOX-GASTAUT SYNDROME
     Route: 048
     Dates: start: 20020301
  6. CLOBAZAM [Concomitant]
     Indication: LENNOX-GASTAUT SYNDROME
     Route: 048
     Dates: start: 20021101

REACTIONS (17)
  - ABASIA [None]
  - ABDOMINAL PAIN [None]
  - ASTHENIA [None]
  - COORDINATION ABNORMAL [None]
  - DIET REFUSAL [None]
  - DRUG INTERACTION [None]
  - DRUG LEVEL INCREASED [None]
  - DYSSTASIA [None]
  - HYPOTENSION [None]
  - HYPOTHERMIA [None]
  - HYPOTONIA [None]
  - MUTISM [None]
  - PERIPHERAL COLDNESS [None]
  - SKIN DISCOLOURATION [None]
  - SOMNOLENCE [None]
  - SPEECH DISORDER [None]
  - VOMITING [None]
